FAERS Safety Report 8876797 (Version 4)
Quarter: 2013Q1

REPORT INFORMATION
  Report Type: Spontaneous
  Country: JP (occurrence: JP)
  Receive Date: 20121029
  Receipt Date: 20130325
  Transmission Date: 20140127
  Serious: Yes (Hospitalization)
  Sender: FDA-Public Use
  Company Number: JP-B.I. PHARMACEUTICALS,INC./RIDGEFIELD-2012-BP-26503NB

PATIENT
  Age: 78 Year
  Sex: Male
  Weight: 59 kg

DRUGS (8)
  1. PRAZAXA [Suspect]
     Indication: ATRIAL FIBRILLATION
     Dosage: 220 MG
     Route: 048
     Dates: start: 20120930, end: 20121005
  2. VASOLAN [Concomitant]
     Dosage: 40 MG
     Route: 048
  3. MAGLAX [Concomitant]
     Dosage: 330 MG
     Route: 048
  4. ATELEC [Concomitant]
     Dosage: 10 MG
     Route: 048
  5. PURSENNID [Concomitant]
     Route: 048
  6. PROMAC [Concomitant]
     Route: 048
  7. PARIET [Concomitant]
     Route: 048
  8. LIDOMEX [Concomitant]
     Route: 062

REACTIONS (1)
  - Febrile neutropenia [Recovered/Resolved]
